FAERS Safety Report 4509626-8 (Version None)
Quarter: 2004Q4

REPORT INFORMATION
  Report Type: 
  Country: None (occurrence: None)
  Receive Date: 20041124
  Receipt Date: 20030902
  Transmission Date: 20050328
  Serious: No
  Sender: FDA-Public Use
  Company Number: US-BRISTOL-MYERS SQUIBB COMPANY-12375416

PATIENT
  Age: 69 Year
  Sex: Male
  Weight: 109 kg

DRUGS (4)
  1. AVALIDE [Suspect]
     Indication: HYPERTENSION
     Route: 048
     Dates: start: 20030218
  2. CILOSTAZOL [Concomitant]
     Indication: CARDIOVASCULAR DISORDER
     Route: 048
  3. ATORVASTATIN CALCIUM [Concomitant]
     Indication: BLOOD CHOLESTEROL INCREASED
     Route: 048
  4. FLUTICASONE PROPIONATE [Concomitant]
     Indication: MULTIPLE ALLERGIES
     Route: 048

REACTIONS (1)
  - HEART RATE INCREASED [None]
